FAERS Safety Report 8792343 (Version 1)
Quarter: 2012Q4

REPORT INFORMATION
  Report Type: 
  Country: US (occurrence: US)
  Receive Date: 20120918
  Receipt Date: 20120918
  Transmission Date: 20130627
  Serious: No
  Sender: FDA-Public Use
  Company Number: US-PFIZER INC-2012228544

PATIENT
  Age: 75 Year
  Sex: Female
  Weight: 64.4 kg

DRUGS (3)
  1. ADVIL [Suspect]
     Indication: SCIATICA
     Dosage: 400 mg, 2x/day
     Dates: start: 201208, end: 20120916
  2. RAMIPRIL [Concomitant]
     Indication: HYPERTENSION
     Dosage: 10 mg, daily
  3. AMLODIPINE BESILATE [Concomitant]
     Indication: HYPERTENSION
     Dosage: 5 mg, daily

REACTIONS (1)
  - Vertigo [Recovered/Resolved]
